FAERS Safety Report 10436247 (Version 2)
Quarter: 2016Q2

REPORT INFORMATION
  Report Type: Report from Study
  Country: BR (occurrence: BR)
  Receive Date: 20140908
  Receipt Date: 20160422
  Transmission Date: 20160815
  Serious: Yes (Hospitalization, Disabling, Other)
  Sender: FDA-Public Use
  Company Number: BR-ABBVIE-14K-020-1278137-00

PATIENT
  Sex: Female
  Weight: 62 kg

DRUGS (17)
  1. RIVOTRIL [Concomitant]
     Active Substance: CLONAZEPAM
     Indication: INSOMNIA
     Dosage: ONCE A DAY
     Route: 048
     Dates: start: 2005
  2. MELOXICAM. [Concomitant]
     Active Substance: MELOXICAM
     Indication: ANKYLOSING SPONDYLITIS
     Dosage: ONCE A DAY
     Route: 048
     Dates: start: 20140825
  3. LYRICA [Concomitant]
     Active Substance: PREGABALIN
     Indication: PAIN
  4. ATENOLOL. [Concomitant]
     Active Substance: ATENOLOL
     Indication: TACHYCARDIA
     Route: 048
     Dates: start: 2012
  5. DICLOFENAC [Concomitant]
     Active Substance: DICLOFENAC
     Indication: PAIN
     Route: 048
     Dates: start: 201602
  6. RITMONORM [Concomitant]
     Active Substance: PROPAFENONE HYDROCHLORIDE
     Indication: SUPRAVENTRICULAR EXTRASYSTOLES
     Route: 048
     Dates: start: 201603
  7. FRONTAL [Concomitant]
     Active Substance: ALPRAZOLAM
     Indication: ANXIETY DISORDER
     Route: 048
     Dates: start: 201403
  8. VENLAFAXINE [Concomitant]
     Active Substance: VENLAFAXINE HYDROCHLORIDE
     Indication: ANXIOLYTIC THERAPY
     Route: 048
     Dates: start: 2013
  9. CERAZETTE [Concomitant]
     Active Substance: DESOGESTREL
     Indication: ENDOMETRIOSIS
     Dosage: ONCE A DAY
     Route: 048
     Dates: start: 2007
  10. DIPYRONE [Concomitant]
     Active Substance: DIPYRONE
     Indication: PAIN
     Route: 048
     Dates: start: 2008
  11. ATENOLOL. [Concomitant]
     Active Substance: ATENOLOL
     Indication: TACHYCARDIA
     Route: 048
     Dates: start: 2012
  12. HUMIRA [Suspect]
     Active Substance: ADALIMUMAB
     Indication: ANKYLOSING SPONDYLITIS
     Route: 058
     Dates: start: 20120509, end: 20151120
  13. LYRICA [Concomitant]
     Active Substance: PREGABALIN
     Indication: FIBROMYALGIA
     Route: 048
     Dates: start: 2011
  14. VENLAFAXINE [Concomitant]
     Active Substance: VENLAFAXINE HYDROCHLORIDE
     Indication: FIBROMYALGIA
     Route: 048
     Dates: start: 2013
  15. VENLAFAXINE [Concomitant]
     Active Substance: VENLAFAXINE HYDROCHLORIDE
     Indication: ANXIETY DISORDER
  16. VENLAFAXINE [Concomitant]
     Active Substance: VENLAFAXINE HYDROCHLORIDE
     Indication: ANXIOLYTIC THERAPY
  17. RITMONORM [Concomitant]
     Active Substance: PROPAFENONE HYDROCHLORIDE
     Indication: SUPRAVENTRICULAR EXTRASYSTOLES
     Route: 048
     Dates: start: 201603

REACTIONS (17)
  - Insomnia [Recovered/Resolved]
  - Abdominal pain upper [Not Recovered/Not Resolved]
  - Arthralgia [Recovering/Resolving]
  - Mitral valve incompetence [Recovering/Resolving]
  - Fatigue [Recovered/Resolved]
  - Fibromyalgia [Recovering/Resolving]
  - Mitral valve prolapse [Recovering/Resolving]
  - Drug ineffective [Unknown]
  - Blood cholesterol increased [Recovering/Resolving]
  - Dyspnoea [Recovered/Resolved]
  - Irritability [Not Recovered/Not Resolved]
  - Tachycardia [Recovering/Resolving]
  - Nodule [Not Recovered/Not Resolved]
  - Gastritis [Not Recovered/Not Resolved]
  - Irritability [Recovered/Resolved]
  - Adrenal insufficiency [Recovered/Resolved]
  - Ulcer [Recovering/Resolving]

NARRATIVE: CASE EVENT DATE: 2012
